FAERS Safety Report 4496183-8 (Version None)
Quarter: 2004Q4

REPORT INFORMATION
  Report Type: 
  Country: None (occurrence: None)
  Receive Date: 20041102
  Receipt Date: 20041018
  Transmission Date: 20050328
  Serious: Yes (Death)
  Sender: FDA-Public Use
  Company Number: 239892

PATIENT
  Age: 7 Year
  Sex: Female

DRUGS (1)
  1. NOVOSEVEN [Suspect]
     Indication: TRAUMATIC HAEMORRHAGE
     Dosage: INTRAVENOUS
     Route: 042
     Dates: start: 20040901, end: 20040901

REACTIONS (3)
  - DISEASE PROGRESSION [None]
  - HAEMORRHAGE [None]
  - THERAPY NON-RESPONDER [None]
